FAERS Safety Report 19287962 (Version 2)
Quarter: 2021Q2

REPORT INFORMATION
  Report Type: Spontaneous
  Country: AU (occurrence: AU)
  Receive Date: 20210521
  Receipt Date: 20210622
  Transmission Date: 20210717
  Serious: Yes (Hospitalization, Other)
  Sender: FDA-Public Use
  Company Number: AU-PURDUE-USA-2021-0262438

PATIENT
  Sex: Male

DRUGS (6)
  1. PALEXIA [Suspect]
     Active Substance: TAPENTADOL HYDROCHLORIDE
     Indication: PRODUCT USED FOR UNKNOWN INDICATION
     Dosage: UNK
     Route: 065
     Dates: start: 20210505
  2. APO?ATENOLOL [Concomitant]
     Dosage: 1 TABLET, DAILY
  3. OXYCODONE HYDROCHLORIDE. [Suspect]
     Active Substance: OXYCODONE HYDROCHLORIDE
     Dosage: 5 TIMES A DAY
     Route: 065
  4. APO?ATENOLOL [Concomitant]
     Indication: HEART RATE INCREASED
     Dosage: UNK, TID [1 TABLET AT BED TIME WITH HALF TABLET IN THE MORNING AND HALF A TABLET AT LUNCH]
  5. OXYCODONE HYDROCHLORIDE. [Suspect]
     Active Substance: OXYCODONE HYDROCHLORIDE
     Indication: PRODUCT USED FOR UNKNOWN INDICATION
     Dosage: 5 TIMES A DAY
     Route: 065
  6. OXYCONTIN [Suspect]
     Active Substance: OXYCODONE HYDROCHLORIDE
     Indication: PRODUCT USED FOR UNKNOWN INDICATION
     Dosage: 10 MG, QID
     Route: 065
     Dates: end: 20210505

REACTIONS (7)
  - Increased upper airway secretion [Recovering/Resolving]
  - Throat tightness [Recovering/Resolving]
  - Chest pain [Recovering/Resolving]
  - Drug withdrawal syndrome [Unknown]
  - Gastric pH decreased [Recovering/Resolving]
  - Anxiety [Unknown]
  - Inappropriate schedule of product administration [Recovered/Resolved]

NARRATIVE: CASE EVENT DATE: 20210507
